FAERS Safety Report 8881592 (Version 1)
Quarter: 2012Q4

REPORT INFORMATION
  Report Type: 
  Country: JP (occurrence: JP)
  Receive Date: 20121102
  Receipt Date: 20121102
  Transmission Date: 20130627
  Serious: Yes (Other)
  Sender: FDA-Public Use
  Company Number: JP-ASTELLAS-2011JP008518

PATIENT
  Age: 61 Year
  Sex: Male

DRUGS (2)
  1. PROGRAF [Suspect]
     Indication: MYASTHENIA GRAVIS
     Dosage: 3 mg, Unknown/D
     Route: 048
     Dates: start: 200110
  2. PREDNISOLONE [Concomitant]
     Indication: MYASTHENIA GRAVIS
     Dosage: 10 mg, Unknown/D
     Route: 048
     Dates: start: 199802

REACTIONS (3)
  - Porokeratosis [Recovering/Resolving]
  - Onychomycosis [Unknown]
  - Tinea pedis [Unknown]
